FAERS Safety Report 9235977 (Version 2)
Quarter: 2013Q2

REPORT INFORMATION
  Report Type: Spontaneous
  Country: ES (occurrence: None)
  Receive Date: 20130329
  Receipt Date: 20130416
  Transmission Date: 20140414
  Serious: Yes (Hospitalization)
  Sender: FDA-Public Use
  Company Number: 2013035206

PATIENT
  Age: 36 Year
  Sex: Male

DRUGS (4)
  1. PRIVIGEN [Suspect]
     Indication: POLYNEUROPATHY
     Dosage: 60 G 1X/MONTH, 60 G PER MONTH DIVIDED IN 20 G PER DAY OVER THREE DAYS SINCE FEB-2013; INFUSION RATE 20 ML/H
  2. DULOXETINE [Concomitant]
  3. DACORTIN (PREDNISONE) [Concomitant]
  4. PANTOPRAZOLE (PANTOPRAZOLE) [Concomitant]

REACTIONS (1)
  - Meningeal disorder [None]
